FAERS Safety Report 8430639-8 (Version None)
Quarter: 2012Q2

REPORT INFORMATION
  Report Type: 
  Country: None (occurrence: None)
  Receive Date: 20120612
  Receipt Date: 20120606
  Transmission Date: 20120825
  Serious: Yes (Hospitalization, Other)
  Sender: FDA-Public Use
  Company Number: US-PFIZER INC-2012136899

PATIENT
  Sex: Female

DRUGS (17)
  1. TOPROL-XL [Suspect]
     Dosage: 100 MG, DAILY
  2. LOVAZA [Concomitant]
     Indication: OSTEOARTHRITIS
     Dosage: 1000 MG, 2X/DAY
  3. OPTIVE [Concomitant]
     Indication: DRY EYE
     Dosage: UNK, AS NEEDED
  4. POTASSIUM CHLORIDE [Concomitant]
     Dosage: UNK, DAILY
  5. TOPROL-XL [Suspect]
     Dosage: 50 MG, DAILY
     Dates: start: 19941003
  6. LOVAZA [Concomitant]
     Indication: OSTEOPENIA
  7. TOPROL-XL [Suspect]
     Dosage: 150 MG, DAILY
  8. LASIX [Concomitant]
     Dosage: 20 MG, DAILY
  9. FLONASE [Concomitant]
     Dosage: 50 UG IN EACH NOSTRIL, 2X/DAY
  10. ACETYLSALICYLIC ACID [Concomitant]
     Indication: FLUSHING
     Dosage: 81 MG, DAILY
  11. CALCIUM CARBONATE [Concomitant]
     Indication: OSTEOPENIA
     Dosage: [CALCIUM 500MG / VITAMINE D 200 IU], 3X/DAY
  12. XANAX [Suspect]
     Dosage: HALF OF 0.25 MG TABLET
     Route: 048
     Dates: start: 19940101
  13. TOPROL-XL [Suspect]
     Dosage: 100 MG, DAILY
  14. NITROGLYCERIN [Concomitant]
     Dosage: 0.2 MG, FROM 6PM TO 6AM
     Route: 062
  15. LIPITOR [Suspect]
     Indication: BLOOD CHOLESTEROL INCREASED
     Dosage: 80 MG, DAILY AT BEDTIME
     Dates: start: 19940101
  16. PLAVIX [Concomitant]
     Indication: ANTICOAGULANT THERAPY
     Dosage: 75 MG, DAILY IN THE MORNING
  17. NITROSTAT [Concomitant]
     Dosage: 0.4 MG, DAILY

REACTIONS (4)
  - CORONARY ARTERY OCCLUSION [None]
  - MYOCARDIAL INFARCTION [None]
  - CARDIAC DISORDER [None]
  - LUNG NEOPLASM MALIGNANT [None]
